FAERS Safety Report 7969033-2 (Version None)
Quarter: 2011Q4

REPORT INFORMATION
  Report Type: 
  Country: None (occurrence: None)
  Receive Date: 20111209
  Receipt Date: 20111202
  Transmission Date: 20120403
  Serious: Yes (Hospitalization)
  Sender: FDA-Public Use
  Company Number: JP-CEPHALON-2011001446

PATIENT
  Age: 52 Year
  Sex: Female

DRUGS (11)
  1. RITUXIMAB [Concomitant]
     Indication: B-CELL LYMPHOMA
     Dates: start: 20110224, end: 20110224
  2. PIMOBENDAN [Concomitant]
     Dates: start: 20110303
  3. FAMOTIDINE [Concomitant]
     Dates: start: 20110303, end: 20110317
  4. CARVEDILOL [Concomitant]
     Dates: start: 20110303
  5. SPIRONOLACTONE [Concomitant]
     Dates: start: 20110303
  6. TRICHLORMETHIAZIDE [Concomitant]
     Dates: start: 20110303
  7. FUROSEMIDE [Concomitant]
     Dates: start: 20110303
  8. ATORVASTATIN [Concomitant]
     Dates: start: 20110303
  9. BENDAMUSTINE HCL [Suspect]
     Indication: B-CELL LYMPHOMA
     Route: 042
     Dates: start: 20110303, end: 20110304
  10. IMIDAPRIL [Concomitant]
     Dates: start: 20110303
  11. DENOPAMINE [Concomitant]
     Dates: start: 20110303

REACTIONS (4)
  - HYPONATRAEMIA [None]
  - RENAL FAILURE [None]
  - DECREASED APPETITE [None]
  - VOMITING [None]
